FAERS Safety Report 21048706 (Version 5)
Quarter: 2025Q3

REPORT INFORMATION
  Report Type: Report from Study
  Country: CA (occurrence: CA)
  Receive Date: 20220706
  Receipt Date: 20250930
  Transmission Date: 20251021
  Serious: Yes (Other)
  Sender: JOHNSON AND JOHNSON
  Company Number: CA-JNJFOC-20220661651

PATIENT
  Age: 15 Year
  Sex: Female
  Weight: 54.1 kg

DRUGS (3)
  1. REMICADE [Suspect]
     Active Substance: INFLIXIMAB
     Indication: Behcet^s syndrome
     Dosage: THERAPY DATE 10/SEP/2020
     Route: 041
     Dates: start: 20200605
  2. REMICADE [Suspect]
     Active Substance: INFLIXIMAB
     Dosage: DOSE 6.28 MG/KG
     Route: 041
  3. REMICADE [Suspect]
     Active Substance: INFLIXIMAB
     Dosage: THERAPY DATE 10/SEP/2020
     Route: 041
     Dates: start: 20200605

REACTIONS (3)
  - Headache [Recovering/Resolving]
  - Eye allergy [Recovering/Resolving]
  - Off label use [Unknown]

NARRATIVE: CASE EVENT DATE: 20200605
